FAERS Safety Report 4838396-9 (Version None)
Quarter: 2005Q4

REPORT INFORMATION
  Report Type: 
  Country: None (occurrence: None)
  Receive Date: 20051123
  Receipt Date: 20051110
  Transmission Date: 20060501
  Serious: Yes (Disabling)
  Sender: FDA-Public Use
  Company Number: 2005156821

PATIENT
  Age: 54 Year
  Sex: Female

DRUGS (3)
  1. GEODON [Suspect]
     Indication: ILL-DEFINED DISORDER
     Dosage: 40 MG (1 IN 1 D)
  2. LAMICTAL [Suspect]
     Indication: ILL-DEFINED DISORDER
     Dosage: 200 MG (1 IN 1 D)
  3. ZYPREXA [Suspect]
     Indication: ILL-DEFINED DISORDER
     Dosage: 5 MG

REACTIONS (3)
  - ABASIA [None]
  - AGITATION [None]
  - TACHYPHRENIA [None]
